FAERS Safety Report 8298997-5 (Version None)
Quarter: 2012Q2

REPORT INFORMATION
  Report Type: 
  Country: None (occurrence: None)
  Receive Date: 20120419
  Receipt Date: 20120417
  Transmission Date: 20120825
  Serious: No
  Sender: FDA-Public Use
  Company Number: US-TEVA-333898USA

PATIENT
  Sex: Female
  Weight: 86.714 kg

DRUGS (2)
  1. OXITRIPTAN [Suspect]
  2. PROAIR HFA [Suspect]
     Indication: DYSPNOEA
     Route: 055
     Dates: start: 20110101

REACTIONS (1)
  - ABDOMINAL PAIN UPPER [None]
